FAERS Safety Report 4401511-5 (Version None)
Quarter: 2004Q2

REPORT INFORMATION
  Report Type: 
  Country: None (occurrence: None)
  Receive Date: 20040618
  Receipt Date: 20040412
  Transmission Date: 20050107
  Serious: No
  Sender: FDA-Public Use
  Company Number: US-JNJFOC-20040401828

PATIENT
  Age: 42 Year
  Sex: Female
  Weight: 85.2762 kg

DRUGS (7)
  1. ORTHO EVRA [Suspect]
     Indication: MENSTRUATION IRREGULAR
     Dosage: 1 DOSE(S), 3 IN 4 WEEK, TRANSDERMAL
     Route: 062
     Dates: start: 20031201, end: 20040406
  2. ACIPHEX [Concomitant]
  3. REGLAN [Concomitant]
  4. CLARINEX [Concomitant]
  5. MULTIVITAMIN [Concomitant]
  6. FERROUS SULFATE TAB [Concomitant]
  7. NASONEX [Concomitant]

REACTIONS (3)
  - APPLICATION SITE REACTION [None]
  - NAUSEA [None]
  - SKIN HYPOPIGMENTATION [None]
